FAERS Safety Report 15622281 (Version 2)
Quarter: 2019Q2

REPORT INFORMATION
  Report Type: Spontaneous
  Country: JP (occurrence: JP)
  Receive Date: 20181115
  Receipt Date: 20190424
  Transmission Date: 20190711
  Serious: Yes (Death, Other)
  Sender: FDA-Public Use
  Company Number: JP-PFIZER INC-2018465816

PATIENT
  Age: 49 Year
  Sex: Female
  Weight: 41.5 kg

DRUGS (1)
  1. LYRICA [Suspect]
     Active Substance: PREGABALIN
     Indication: METASTASES TO BONE
     Dosage: 75 MG, 1X/DAY
     Route: 048
     Dates: start: 20170210, end: 20170210

REACTIONS (2)
  - Syncope [Recovered/Resolved]
  - Neoplasm progression [Fatal]

NARRATIVE: CASE EVENT DATE: 20170211
